FAERS Safety Report 11333681 (Version 1)
Quarter: 2015Q3

REPORT INFORMATION
  Report Type: Spontaneous
  Country: BR (occurrence: BR)
  Receive Date: 20150803
  Receipt Date: 20150803
  Transmission Date: 20151125
  Serious: Yes (Other)
  Sender: FDA-Public Use
  Company Number: BR-009507513-1507BRA014637

PATIENT
  Age: 21 Month
  Sex: Female
  Weight: 8 kg

DRUGS (2)
  1. AD-TIL [Concomitant]
     Indication: VITAMIN SUPPLEMENTATION
     Dosage: 2 DROPS, QD
     Route: 048
     Dates: start: 20131021
  2. SINGULAIR [Suspect]
     Active Substance: MONTELUKAST SODIUM
     Indication: RHINITIS ALLERGIC
     Dosage: 4 MG, QD
     Route: 048
     Dates: start: 20150714, end: 20150716

REACTIONS (3)
  - Erythema [Recovering/Resolving]
  - Blister [Recovering/Resolving]
  - Urticaria [Recovering/Resolving]

NARRATIVE: CASE EVENT DATE: 20150717
